FAERS Safety Report 8829815 (Version 1)
Quarter: 2012Q4

REPORT INFORMATION
  Report Type: 
  Country: US (occurrence: US)
  Receive Date: 20121008
  Receipt Date: 20121008
  Transmission Date: 20130627
  Serious: Yes (Other)
  Sender: FDA-Public Use
  Company Number: US-ROCHE-1037595

PATIENT
  Sex: Female
  Weight: 83.99 kg

DRUGS (1)
  1. ZELBORAF [Suspect]
     Indication: METASTATIC MALIGNANT MELANOMA
     Route: 048
     Dates: start: 201202

REACTIONS (11)
  - Squamous cell carcinoma of skin [Not Recovered/Not Resolved]
  - Diarrhoea [Unknown]
  - Alopecia [Unknown]
  - Mass [Unknown]
  - Headache [Unknown]
  - Sunburn [Unknown]
  - Skin papilloma [Not Recovered/Not Resolved]
  - Rash [Recovered/Resolved]
  - Arthralgia [Recovered/Resolved]
  - Hyperkeratosis [Unknown]
  - Skin hypertrophy [Not Recovered/Not Resolved]
